FAERS Safety Report 12897175 (Version 2)
Quarter: 2016Q4

REPORT INFORMATION
  Report Type: Spontaneous
  Country: IT (occurrence: IT)
  Receive Date: 20161031
  Receipt Date: 20161116
  Transmission Date: 20170207
  Serious: Yes (Other)
  Sender: FDA-Public Use
  Company Number: IT-TEVA-706775ACC

PATIENT
  Age: 50 Year
  Sex: Female
  Weight: 114 kg

DRUGS (1)
  1. OLANZAPINA TEVA - 10 MG COMPRESSE RIVESTITE CON FILM - TEVA B.V. [Suspect]
     Active Substance: OLANZAPINE
     Indication: SCHIZOPHRENIA
     Dosage: 10 MILLIGRAM DAILY;
     Route: 048
     Dates: start: 20160701, end: 20160730

REACTIONS (3)
  - Syncope [Recovered/Resolved]
  - Hyperhidrosis [Recovered/Resolved]
  - Vertigo [Recovered/Resolved]

NARRATIVE: CASE EVENT DATE: 20160730
